FAERS Safety Report 7620133-6 (Version None)
Quarter: 2011Q3

REPORT INFORMATION
  Report Type: 
  Country: None (occurrence: None)
  Receive Date: 20110719
  Receipt Date: 20110707
  Transmission Date: 20111222
  Serious: Yes (Hospitalization, Other)
  Sender: FDA-Public Use
  Company Number: US-MYLANLABS-2011S1014420

PATIENT
  Sex: Female

DRUGS (1)
  1. PHENYTOIN SODIUM CAP [Suspect]

REACTIONS (2)
  - DRUG LEVEL BELOW THERAPEUTIC [None]
  - ORGAN TRANSPLANT [None]
